FAERS Safety Report 5114013-8 (Version None)
Quarter: 2006Q3

REPORT INFORMATION
  Report Type: 
  Country: None (occurrence: None)
  Receive Date: 20060921
  Receipt Date: 20060915
  Transmission Date: 20061208
  Serious: No
  Sender: FDA-Public Use
  Company Number: TPA2006A00185

PATIENT
  Age: 55 Year
  Sex: Female

DRUGS (8)
  1. ACTOS [Suspect]
     Indication: DIABETES MELLITUS
     Dosage: PER ORAL
     Route: 048
  2. NOVOLOG MIX 70/30 [Suspect]
     Dates: start: 20060101
  3. METFORMIN HCL [Concomitant]
  4. PRAVACHOL [Concomitant]
  5. COREG [Concomitant]
  6. TRIAMTERENE AND HYDROCHLOROTHIAZIDE (HYDROCHLOROTHIAZIDE, TRIAMTERENE) [Concomitant]
  7. NEURONTIN [Concomitant]
  8. HUMULIN N [Suspect]
     Indication: DIABETES MELLITUS
     Dates: start: 20050101, end: 20060101

REACTIONS (2)
  - BLINDNESS UNILATERAL [None]
  - RETINAL HAEMORRHAGE [None]
